FAERS Safety Report 21484836 (Version 4)
Quarter: 2022Q4

REPORT INFORMATION
  Report Type: Spontaneous
  Country: US (occurrence: US)
  Receive Date: 20221020
  Receipt Date: 20221104
  Transmission Date: 20230113
  Serious: Yes (Life-Threatening, Hospitalization, Other)
  Sender: FDA-Public Use
  Company Number: US-PFIZER INC-PV202200079310

PATIENT
  Age: 60 Year
  Sex: Female

DRUGS (5)
  1. RITUXIMAB [Suspect]
     Active Substance: RITUXIMAB
     Indication: Asthenia
     Dosage: UNK, CYCLIC (ONCE CYCLE)
  2. CYCLOPHOSPHAMIDE [Suspect]
     Active Substance: CYCLOPHOSPHAMIDE
     Indication: Asthenia
     Dosage: UNK, CYCLIC (ONCE CYCLE)
  3. DOXORUBICIN [Suspect]
     Active Substance: DOXORUBICIN
     Indication: Asthenia
     Dosage: UNK, CYCLIC (ONCE CYCLE)
  4. ONCOVIN [Suspect]
     Active Substance: VINCRISTINE SULFATE
     Indication: Asthenia
     Dosage: UNK, CYCLIC (ONCE CYCLE)
  5. PREDNISONE [Suspect]
     Active Substance: PREDNISONE
     Indication: Asthenia
     Dosage: UNK, CYCLIC (ONCE CYCLE)

REACTIONS (1)
  - Tumour lysis syndrome [Unknown]
